FAERS Safety Report 6460694-6 (Version None)
Quarter: 2009Q4

REPORT INFORMATION
  Report Type: 
  Country: None (occurrence: None)
  Receive Date: 20091130
  Receipt Date: 20091118
  Transmission Date: 20100525
  Serious: Yes (Death, Other)
  Sender: FDA-Public Use
  Company Number: JP-PFIZER INC-2009284187

PATIENT
  Age: 64 Year
  Sex: Male
  Weight: 37.9 kg

DRUGS (14)
  1. LINEZOLID [Suspect]
     Dosage: 600 MG, 1X/DAY, DAILY
     Route: 042
     Dates: start: 20080426, end: 20080426
  2. LINEZOLID [Suspect]
     Dosage: 600 MG, 2X/DAY
     Route: 042
     Dates: start: 20080427, end: 20090505
  3. LINEZOLID [Suspect]
     Dosage: 600 MG, 1X/DAY
     Route: 042
     Dates: start: 20080506, end: 20080506
  4. AMBISOME [Concomitant]
     Dosage: UNK
     Route: 042
     Dates: end: 20080429
  5. GLYCERIN W/FRUCTOSE [Concomitant]
     Dosage: UNK
     Route: 042
     Dates: end: 20080506
  6. SOLU-MEDROL [Concomitant]
     Dosage: UNK
     Route: 042
     Dates: end: 20080426
  7. ALL OTHER THERAPEUTIC PRODUCTS [Concomitant]
     Dosage: UNK
     Route: 042
     Dates: end: 20080426
  8. GASTER [Concomitant]
     Dosage: UNK
     Route: 042
     Dates: end: 20080506
  9. DECADRON [Concomitant]
     Dosage: UNK
     Route: 042
     Dates: start: 20080426, end: 20080506
  10. ALL OTHER THERAPEUTIC PRODUCTS [Concomitant]
     Dosage: UNK
     Route: 042
     Dates: start: 20080427, end: 20080428
  11. ALL OTHER THERAPEUTIC PRODUCTS [Concomitant]
     Dosage: UNK
     Route: 042
     Dates: start: 20080429, end: 20080505
  12. ALEVIATIN [Concomitant]
     Dosage: UNK
     Route: 042
     Dates: start: 20080429, end: 20080506
  13. DILTIAZEM HYDROCHLORIDE [Concomitant]
     Dosage: UNK
     Route: 042
     Dates: start: 20080428, end: 20080506
  14. MAXIPIME [Concomitant]
     Dosage: UNK
     Route: 042
     Dates: start: 20080501, end: 20080508

REACTIONS (1)
  - LUNG NEOPLASM MALIGNANT [None]
